FAERS Safety Report 16561642 (Version 2)
Quarter: 2019Q3

REPORT INFORMATION
  Report Type: Spontaneous
  Country: US (occurrence: US)
  Receive Date: 20190711
  Receipt Date: 20190717
  Transmission Date: 20191004
  Serious: No
  Sender: FDA-Public Use
  Company Number: US-GLAXOSMITHKLINE-US2019123687

PATIENT
  Age: 73 Year
  Sex: Female

DRUGS (2)
  1. ABREVA [Suspect]
     Active Substance: DOCOSANOL
     Indication: ORAL HERPES
     Dosage: MAYBE IT WAS ONLY 3 OR 4 TIMES APPLY
     Route: 061
     Dates: start: 20190624, end: 20190705
  2. ABREVA [Suspect]
     Active Substance: DOCOSANOL
     Dosage: MAYBE IT WAS ONLY 3 OR 4 TIMES APPLY
     Route: 061
     Dates: start: 20190624, end: 20190705

REACTIONS (2)
  - Inappropriate schedule of product administration [Unknown]
  - Incorrect product administration duration [Unknown]
